FAERS Safety Report 7367274-9 (Version None)
Quarter: 2011Q1

REPORT INFORMATION
  Report Type: 
  Country: None (occurrence: None)
  Receive Date: 20110311
  Receipt Date: 20110225
  Transmission Date: 20110831
  Serious: Yes (Hospitalization)
  Sender: FDA-Public Use
  Company Number: IDA-00504

PATIENT
  Age: 46 Year
  Sex: Male

DRUGS (4)
  1. INDERAL [Suspect]
     Indication: VARICES OESOPHAGEAL
     Dosage: 10 MG, TID, ORAL FORMULATION: TABLET
     Route: 048
     Dates: start: 20101016, end: 20101026
  2. RANITIDINE [Concomitant]
  3. LACTULOSE [Concomitant]
  4. SPIRONOLACTONE [Concomitant]

REACTIONS (1)
  - MYOCLONUS [None]
